FAERS Safety Report 14224407 (Version 2)
Quarter: 2017Q4

REPORT INFORMATION
  Report Type: Spontaneous
  Country: US (occurrence: US)
  Receive Date: 20171126
  Receipt Date: 20171214
  Transmission Date: 20180321
  Serious: Yes (Hospitalization)
  Sender: FDA-Public Use
  Company Number: US-NEUROCRINE BIOSCIENCES INC.-2017NBI01590

PATIENT
  Age: 50 Year
  Sex: Female

DRUGS (5)
  1. INGREZZA [Suspect]
     Active Substance: VALBENAZINE
     Indication: TARDIVE DYSKINESIA
     Route: 048
     Dates: start: 20170905, end: 20170912
  2. VENLAFAXINE ER [Concomitant]
     Active Substance: VENLAFAXINE HYDROCHLORIDE
  3. RISPERDAL [Concomitant]
     Active Substance: RISPERIDONE
  4. BENZTROPINE MESYLATE. [Concomitant]
     Active Substance: BENZTROPINE MESYLATE
  5. INGREZZA [Suspect]
     Active Substance: VALBENAZINE
     Route: 048
     Dates: start: 20170913, end: 201711

REACTIONS (9)
  - Aphasia [Not Recovered/Not Resolved]
  - Gait disturbance [Recovering/Resolving]
  - Blood pressure increased [Unknown]
  - Dysphagia [Unknown]
  - Dysstasia [Recovered/Resolved]
  - Dyskinesia [Unknown]
  - Drooling [Unknown]
  - Disorientation [Unknown]
  - Motor dysfunction [Recovering/Resolving]

NARRATIVE: CASE EVENT DATE: 201711
